FAERS Safety Report 22151239 (Version 2)
Quarter: 2023Q2

REPORT INFORMATION
  Report Type: Spontaneous
  Country: US (occurrence: None)
  Receive Date: 20230329
  Receipt Date: 20230605
  Transmission Date: 20230722
  Serious: No
  Sender: FDA-Public Use
  Company Number: 2023A050682

PATIENT
  Sex: Female

DRUGS (1)
  1. PULMICORT FLEXHALER [Suspect]
     Active Substance: BUDESONIDE
     Dosage: 90.0UG UNKNOWN
     Route: 055

REACTIONS (7)
  - Renal disorder [Unknown]
  - Asthma [Unknown]
  - Cough [Unknown]
  - Device use issue [Unknown]
  - Product dose omission issue [Unknown]
  - Device malfunction [Unknown]
  - Device malfunction [Unknown]
